FAERS Safety Report 13793714 (Version 5)
Quarter: 2018Q4

REPORT INFORMATION
  Report Type: Spontaneous
  Country: US (occurrence: US)
  Receive Date: 20170726
  Receipt Date: 20181116
  Transmission Date: 20190204
  Serious: Yes (Hospitalization, Other)
  Sender: FDA-Public Use
  Company Number: US-PFIZER INC-2017324061

PATIENT
  Sex: Female
  Weight: 68 kg

DRUGS (5)
  1. REVATIO [Suspect]
     Active Substance: SILDENAFIL CITRATE
     Indication: CHRONIC OBSTRUCTIVE PULMONARY DISEASE
  2. PROAIR [SALBUTAMOL SULFATE] [Concomitant]
     Indication: PULMONARY ARTERIAL HYPERTENSION
     Dosage: UNK, TWICE DAILY
     Route: 055
  3. REVATIO [Suspect]
     Active Substance: SILDENAFIL CITRATE
     Indication: BRONCHITIS CHRONIC
     Dosage: 20 MG, ONCE DAILY
     Route: 048
     Dates: start: 201801
  4. REVATIO [Suspect]
     Active Substance: SILDENAFIL CITRATE
     Indication: PULMONARY ARTERIAL HYPERTENSION
     Dosage: 20 MG, TWICE DAILY
     Route: 048
  5. OXYGEN. [Concomitant]
     Active Substance: OXYGEN
     Indication: PULMONARY ARTERIAL HYPERTENSION
     Dosage: 2 L, ONCE DAILY (AT NIGHT)

REACTIONS (8)
  - Urinary tract infection [Unknown]
  - Food poisoning [Unknown]
  - Macular degeneration [Unknown]
  - Pneumonia aspiration [Unknown]
  - Clostridium difficile infection [Unknown]
  - Intentional product use issue [Unknown]
  - Drug hypersensitivity [Unknown]
  - Malaise [Unknown]

NARRATIVE: CASE EVENT DATE: 201801
